FAERS Safety Report 20458137 (Version 1)
Quarter: 2022Q1

REPORT INFORMATION
  Report Type: Report from Study
  Country: KR (occurrence: None)
  Receive Date: 20220211
  Receipt Date: 20220211
  Transmission Date: 20220423
  Serious: Yes (Hospitalization)
  Sender: FDA-Public Use
  Company Number: 2022A056773

PATIENT
  Age: 16065 Day
  Sex: Female
  Weight: 79.6 kg

DRUGS (8)
  1. CERALASERTIB [Suspect]
     Active Substance: CERALASERTIB
     Indication: Small cell lung cancer
     Route: 048
     Dates: start: 20220119, end: 20220130
  2. DURVALUMAB [Suspect]
     Active Substance: DURVALUMAB
     Indication: Small cell lung cancer
     Dosage: 1500.0MG ONCE/SINGLE ADMINISTRATION
     Route: 042
     Dates: start: 20220105, end: 20220105
  3. LEVOTHYROZINE [Concomitant]
     Indication: Hypothyroidism
     Route: 048
     Dates: start: 20210902
  4. DENOSUMAB [Concomitant]
     Active Substance: DENOSUMAB
     Indication: Metastases to bone
     Route: 058
     Dates: start: 20211231
  5. CAVID [Concomitant]
     Indication: Metastases to bone
     Route: 048
     Dates: start: 20211231
  6. NALOXONE HYDROCHLORIDE\OXYCODONE HYDROCHLORIDE [Concomitant]
     Active Substance: NALOXONE HYDROCHLORIDE\OXYCODONE HYDROCHLORIDE
     Indication: Back pain
     Dosage: 10/5 MG BID
     Route: 048
     Dates: start: 20210222
  7. OXYCODONE HYDROCHLORIDE [Concomitant]
     Active Substance: OXYCODONE HYDROCHLORIDE
     Indication: Back pain
     Dosage: 5.0MG AS REQUIRED
     Route: 048
     Dates: start: 20210222
  8. CETAMADOL [Concomitant]
     Indication: Back pain
     Route: 048
     Dates: start: 20210715

REACTIONS (1)
  - Platelet count decreased [Not Recovered/Not Resolved]

NARRATIVE: CASE EVENT DATE: 20220130
